FAERS Safety Report 13299147 (Version 1)
Quarter: 2017Q1

REPORT INFORMATION
  Report Type: Spontaneous
  Country: US (occurrence: US)
  Receive Date: 20170306
  Receipt Date: 20170306
  Transmission Date: 20170428
  Serious: No
  Sender: FDA-Public Use
  Company Number: US-APOTEX-2016AP014053

PATIENT
  Age: 62 Year
  Sex: Female

DRUGS (1)
  1. BUPROPION HYDROCHLORIDE. [Suspect]
     Active Substance: BUPROPION HYDROCHLORIDE
     Indication: DEPRESSION
     Dosage: 75MG + 150MG, UNK
     Route: 048

REACTIONS (3)
  - Abdominal discomfort [Not Recovered/Not Resolved]
  - Product physical issue [Not Recovered/Not Resolved]
  - Dysgeusia [Not Recovered/Not Resolved]
